FAERS Safety Report 4960424-0 (Version None)
Quarter: 2006Q2

REPORT INFORMATION
  Report Type: 
  Country: None (occurrence: None)
  Receive Date: 20060403
  Receipt Date: 20060320
  Transmission Date: 20061013
  Serious: Yes (Hospitalization)
  Sender: FDA-Public Use
  Company Number: PHRM2006FR01119

PATIENT
  Age: 64 Year
  Sex: Female
  Weight: 110 kg

DRUGS (2)
  1. GLEEVEC [Suspect]
     Indication: CHRONIC MYELOID LEUKAEMIA
     Dosage: 400 MG DAILY
     Route: 048
     Dates: start: 20040508, end: 20051222
  2. GLEEVEC [Suspect]
     Dates: start: 20060112

REACTIONS (6)
  - ABDOMINAL PAIN [None]
  - COLECTOMY [None]
  - COLON CANCER [None]
  - COLONIC STENOSIS [None]
  - OMENTECTOMY [None]
  - RECTAL HAEMORRHAGE [None]
